FAERS Safety Report 4683781-1 (Version None)
Quarter: 2005Q2

REPORT INFORMATION
  Report Type: 
  Country: None (occurrence: None)
  Receive Date: 20050602
  Receipt Date: 20050314
  Transmission Date: 20051028
  Serious: No
  Sender: FDA-Public Use
  Company Number: 200421126BWH

PATIENT
  Age: 73 Year
  Sex: Male

DRUGS (4)
  1. LEVITRA [Suspect]
     Indication: ERECTILE DYSFUNCTION
     Dosage: 20 MG, TOTAL DAILY, ORAL
     Route: 048
     Dates: start: 20041205
  2. OMEPRAZOLE [Concomitant]
  3. HYDROXYZINE [Concomitant]
  4. ATENOLOL [Concomitant]

REACTIONS (2)
  - ERECTILE DYSFUNCTION [None]
  - HEADACHE [None]
